FAERS Safety Report 21733927 (Version 1)
Quarter: 2022Q4

REPORT INFORMATION
  Report Type: Spontaneous
  Country: US (occurrence: None)
  Receive Date: 20221214
  Receipt Date: 20221214
  Transmission Date: 20230112
  Serious: Yes (Hospitalization)
  Sender: FDA-Public Use
  Company Number: None

PATIENT
  Age: 6 Year
  Sex: Female

DRUGS (9)
  1. AMBRISENTAN [Suspect]
     Active Substance: AMBRISENTAN
     Indication: Pulmonary hypertension
     Dosage: FREQUENCY : TWICE A DAY;?
     Route: 048
     Dates: start: 20211020
  2. TADALAFIL [Concomitant]
     Active Substance: TADALAFIL
  3. SPIRONOLACTONE [Concomitant]
     Active Substance: SPIRONOLACTONE
  4. LASIX [Concomitant]
     Active Substance: FUROSEMIDE
  5. LOSARTAN [Concomitant]
     Active Substance: LOSARTAN
  6. FLONASE [Concomitant]
     Active Substance: FLUTICASONE PROPIONATE
  7. ::ulturelle [Concomitant]
  8. SENOKOT [Concomitant]
     Active Substance: SENNOSIDES
  9. MELATONIN [Concomitant]
     Active Substance: MELATONIN

REACTIONS (3)
  - Acute kidney injury [None]
  - Mental status changes [None]
  - Bacterial sepsis [None]

NARRATIVE: CASE EVENT DATE: 20221114
